FAERS Safety Report 14131778 (Version 3)
Quarter: 2017Q4

REPORT INFORMATION
  Report Type: Spontaneous
  Country: US (occurrence: US)
  Receive Date: 20171026
  Receipt Date: 20171122
  Transmission Date: 20180321
  Serious: Yes (Other)
  Sender: FDA-Public Use
  Company Number: US-JNJFOC-20171027631

PATIENT
  Age: 34 Year
  Sex: Male
  Weight: 74.39 kg

DRUGS (4)
  1. RISPERDAL CONSTA [Suspect]
     Active Substance: RISPERIDONE
     Indication: SCHIZOPHRENIA
     Route: 030
  2. RISPERDAL CONSTA [Suspect]
     Active Substance: RISPERIDONE
     Indication: MENTAL DISORDER
     Route: 030
     Dates: start: 20171018
  3. RISPERDAL CONSTA [Suspect]
     Active Substance: RISPERIDONE
     Indication: MENTAL DISORDER
     Route: 030
  4. RISPERDAL CONSTA [Suspect]
     Active Substance: RISPERIDONE
     Indication: SCHIZOPHRENIA
     Route: 030
     Dates: start: 20171018

REACTIONS (3)
  - Device breakage [Unknown]
  - Imprisonment [Unknown]
  - Product packaging issue [Unknown]

NARRATIVE: CASE EVENT DATE: 2017
